FAERS Safety Report 5922957-X (Version None)
Quarter: 2008Q4

REPORT INFORMATION
  Report Type: 
  Country: None (occurrence: None)
  Receive Date: 20081018
  Receipt Date: 20081008
  Transmission Date: 20090506
  Serious: Yes (Hospitalization, Other)
  Sender: FDA-Public Use
  Company Number: US-PFIZER INC-2008028088

PATIENT
  Sex: Female

DRUGS (1)
  1. BEXTRA [Suspect]
     Indication: ARTHRITIS
     Dates: start: 20040101

REACTIONS (5)
  - AMNESIA [None]
  - ANXIETY [None]
  - DEPRESSION [None]
  - HYPERTENSION [None]
  - RENAL DISORDER [None]
